FAERS Safety Report 8230699-3 (Version None)
Quarter: 2012Q1

REPORT INFORMATION
  Report Type: 
  Country: None (occurrence: None)
  Receive Date: 20120323
  Receipt Date: 20120314
  Transmission Date: 20120608
  Serious: Yes (Other)
  Sender: FDA-Public Use
  Company Number: BR-JNJFOC-20120308108

PATIENT
  Age: 56 Year
  Sex: Female
  Weight: 54.65 kg

DRUGS (3)
  1. AZATHIOPRINE [Concomitant]
     Indication: CROHN'S DISEASE
     Route: 065
     Dates: start: 20030101
  2. REMICADE [Suspect]
     Indication: CROHN'S DISEASE
     Route: 042
     Dates: start: 20090715
  3. CORTISONE ACETATE [Concomitant]
     Indication: CROHN'S DISEASE
     Route: 048
     Dates: start: 20030101

REACTIONS (4)
  - GASTROINTESTINAL INFECTION [None]
  - HAEMORRHAGE [None]
  - NAUSEA [None]
  - FISTULA [None]
